FAERS Safety Report 13091589 (Version 1)
Quarter: 2017Q1

REPORT INFORMATION
  Report Type: Spontaneous
  Country: DK (occurrence: DK)
  Receive Date: 20170106
  Receipt Date: 20170106
  Transmission Date: 20170428
  Serious: Yes (Life-Threatening, Hospitalization)
  Sender: FDA-Public Use
  Company Number: PHHY2017DK000936

PATIENT
  Age: 63 Year
  Sex: Male

DRUGS (7)
  1. ENTRESTO [Suspect]
     Active Substance: SACUBITRIL\VALSARTAN
     Indication: CARDIAC FAILURE CHRONIC
     Dosage: 100 MG (49/51 MG), BID
     Route: 048
     Dates: start: 20161130, end: 20161214
  2. FURIX [Concomitant]
     Active Substance: FUROSEMIDE
     Indication: ISCHAEMIC CARDIOMYOPATHY
     Route: 065
     Dates: start: 20161130
  3. ALDACTONE [Concomitant]
     Active Substance: SPIRONOLACTONE
     Indication: ISCHAEMIC CARDIOMYOPATHY
     Route: 065
  4. ATORVASTATIN [Concomitant]
     Active Substance: ATORVASTATIN
     Indication: ISCHAEMIC CARDIOMYOPATHY
     Route: 065
  5. CARVEDILOL. [Concomitant]
     Active Substance: CARVEDILOL
     Indication: ISCHAEMIC CARDIOMYOPATHY
     Route: 065
  6. ENTRESTO [Suspect]
     Active Substance: SACUBITRIL\VALSARTAN
     Dosage: 200 MG (97/103 MG)
     Route: 048
     Dates: start: 20161214
  7. HJERDYL [Concomitant]
     Active Substance: ASPIRIN
     Indication: ISCHAEMIC CARDIOMYOPATHY
     Route: 065

REACTIONS (2)
  - Acute myocardial infarction [Recovered/Resolved]
  - Vascular stent thrombosis [Recovered/Resolved]

NARRATIVE: CASE EVENT DATE: 20161219
